FAERS Safety Report 7690939-6 (Version None)
Quarter: 2011Q3

REPORT INFORMATION
  Report Type: 
  Country: None (occurrence: None)
  Receive Date: 20110818
  Receipt Date: 20110805
  Transmission Date: 20111222
  Serious: No
  Sender: FDA-Public Use
  Company Number: US-B.I. PHARMACEUTICALS,INC./RIDGEFIELD-2011-BP-19387BP

PATIENT
  Sex: Male

DRUGS (3)
  1. TOPROL-XL [Concomitant]
     Indication: CARDIAC DISORDER
  2. PRADAXA [Suspect]
     Indication: ATRIAL FIBRILLATION
     Dosage: 300 MG
     Route: 048
     Dates: start: 20110605
  3. CARDIZEM [Concomitant]
     Indication: CARDIAC DISORDER

REACTIONS (1)
  - GASTROOESOPHAGEAL REFLUX DISEASE [None]
